FAERS Safety Report 13715557 (Version 4)
Quarter: 2017Q3

REPORT INFORMATION
  Report Type: Spontaneous
  Country: BR (occurrence: BR)
  Receive Date: 20170705
  Receipt Date: 20170818
  Transmission Date: 20171127
  Serious: Yes (Hospitalization)
  Sender: FDA-Public Use
  Company Number: BR-AMGEN-BRASP2017093593

PATIENT
  Age: 53 Year
  Sex: Male

DRUGS (10)
  1. OMEPRAZOLE. [Concomitant]
     Active Substance: OMEPRAZOLE
     Dosage: IN THE MORNING FASTING
     Dates: start: 2002
  2. MUSCULARE [Concomitant]
     Dosage: 1 CAPSULE AT NIGHT
     Dates: start: 20170328
  3. ENBREL [Suspect]
     Active Substance: ETANERCEPT
     Indication: RHEUMATOID ARTHRITIS
     Dosage: 50 MG, ONE SYRINGE PER WEEK
     Route: 065
  4. ENALAPRIL [Concomitant]
     Active Substance: ENALAPRIL
     Indication: BLOOD PRESSURE INCREASED
     Dosage: 2 TABLETS PER DAY
  5. ENALAPRIL [Concomitant]
     Active Substance: ENALAPRIL
     Dosage: 1 TABLET PER DAY
  6. DISFOR [Concomitant]
     Dosage: UNK
     Dates: start: 20170328
  7. ACTONEL [Concomitant]
     Active Substance: RISEDRONATE SODIUM
     Dosage: 150 MG, MONTHLY
     Dates: start: 20170328
  8. ADDERA D3 [Concomitant]
     Active Substance: CHOLECALCIFEROL
     Dosage: 700 IU, UNK
  9. ENBREL [Suspect]
     Active Substance: ETANERCEPT
     Indication: PSORIASIS
     Dosage: EVERY 10 DAYS
     Route: 065
     Dates: start: 20170719
  10. AZULFIDINE [Concomitant]
     Active Substance: SULFASALAZINE
     Dosage: 500 MG, UNK
     Route: 065
     Dates: start: 2014

REACTIONS (5)
  - Varicose vein [Unknown]
  - Injection site nodule [Recovered/Resolved]
  - Product use issue [Unknown]
  - Injection site pain [Recovered/Resolved]
  - Drug dose omission [Recovered/Resolved]

NARRATIVE: CASE EVENT DATE: 2016
